FAERS Safety Report 7544131-6 (Version None)
Quarter: 2011Q2

REPORT INFORMATION
  Report Type: 
  Country: None (occurrence: None)
  Receive Date: 20110613
  Receipt Date: 20060613
  Transmission Date: 20111010
  Serious: Yes (Death, Life-Threatening)
  Sender: FDA-Public Use
  Company Number: PHHO2005TW19125

PATIENT
  Sex: Male
  Weight: 70.4 kg

DRUGS (4)
  1. ALKERAN [Concomitant]
     Indication: MULTIPLE MYELOMA
     Dates: start: 20050920
  2. ZOLEDRONIC ACID [Suspect]
     Indication: METASTASES TO BONE
     Dosage: 4 MG, UNK
     Route: 042
     Dates: start: 20051101, end: 20051201
  3. NORVASC [Concomitant]
     Indication: HYPERTENSION
     Dates: start: 20051101
  4. PREDNISOLONE [Concomitant]
     Indication: MULTIPLE MYELOMA
     Dates: start: 20050920

REACTIONS (4)
  - DEATH [None]
  - TUMOUR HAEMORRHAGE [None]
  - GASTROINTESTINAL HAEMORRHAGE [None]
  - GASTRIC CANCER [None]
